FAERS Safety Report 6613508-5 (Version None)
Quarter: 2010Q1

REPORT INFORMATION
  Report Type: 
  Country: None (occurrence: None)
  Receive Date: 20100225
  Receipt Date: 20100215
  Transmission Date: 20100710
  Serious: Yes (Death)
  Sender: FDA-Public Use
  Company Number: FR-2010-0337

PATIENT
  Sex: Female

DRUGS (8)
  1. NAVELBINE [Suspect]
     Indication: OVARIAN CANCER
     Dates: start: 20091124, end: 20091221
  2. TAHOR. MFR: NOT SPECIFIED [Suspect]
     Dosage: 20 MG PO
     Route: 048
     Dates: end: 20100118
  3. TOPALGIC. MFR: NOT SPECIFIED [Suspect]
     Dosage: 50 MG BID PO
     Route: 047
     Dates: start: 20100111, end: 20100116
  4. ATARAX [Suspect]
     Dosage: 25 MG QD PO
     Route: 048
     Dates: start: 20100111, end: 20100115
  5. LEVOTHYROX. MFR: NOT SPECIFIED [Suspect]
     Dosage: 25 UG QD PO
     Route: 048
     Dates: end: 20100118
  6. CORDARONE [Suspect]
     Dates: end: 20100118
  7. FLECAINE. MFR: NOT SPECIFIED [Suspect]
     Dosage: 200 M G QD PO
     Route: 048
     Dates: end: 20100118
  8. LASILIX. MFR: NOT SPECIFIED [Suspect]
     Dosage: 40 MG QD PO
     Route: 048
     Dates: end: 20100118

REACTIONS (1)
  - INTESTINAL OBSTRUCTION [None]
